FAERS Safety Report 14673456 (Version 1)
Quarter: 2018Q1

REPORT INFORMATION
  Report Type: Spontaneous
  Country: US (occurrence: US)
  Receive Date: 20180322
  Receipt Date: 20180322
  Transmission Date: 20180509
  Serious: Yes (Life-Threatening)
  Sender: FDA-Public Use
  Company Number: None

PATIENT
  Age: 63 Year
  Sex: Male
  Weight: 73.8 kg

DRUGS (1)
  1. CARFILZOMIB [Suspect]
     Active Substance: CARFILZOMIB
     Indication: PLASMA CELL MYELOMA
     Dosage: ?          OTHER FREQUENCY:DAYS 1,2,8,9,15,16;?
     Route: 042
     Dates: start: 20180313, end: 20180321

REACTIONS (1)
  - Back pain [None]

NARRATIVE: CASE EVENT DATE: 20180321
